FAERS Safety Report 4633094-9 (Version None)
Quarter: 2005Q2

REPORT INFORMATION
  Report Type: 
  Country: None (occurrence: None)
  Receive Date: 20050411
  Receipt Date: 20050411
  Transmission Date: 20051028
  Serious: Yes (Life-Threatening, Hospitalization)
  Sender: FDA-Public Use
  Company Number: None

PATIENT
  Age: 65 Year
  Sex: Male
  Weight: 92.9874 kg

DRUGS (2)
  1. CLAVULANAATE POT/AMOXIC    875MG      CRN: 96723587  -?- [Suspect]
     Indication: NASOPHARYNGITIS
     Dosage: ONE TABLET   TWICE A DAY  ORAL
     Route: 048
     Dates: start: 20050224, end: 20050304
  2. CLAVULANAATE POT/AMOXIC    875MG      CRN: 96723587  -?- [Suspect]
     Indication: NASOPHARYNGITIS
     Dosage: ONE TABLET   TWICE A DAY  ORAL
     Route: 048
     Dates: start: 20050312, end: 20050312

REACTIONS (4)
  - APHONIA [None]
  - BLOOD PRESSURE DECREASED [None]
  - DRUG HYPERSENSITIVITY [None]
  - LOSS OF CONSCIOUSNESS [None]
